FAERS Safety Report 6130536-7 (Version None)
Quarter: 2009Q1

REPORT INFORMATION
  Report Type: 
  Country: None (occurrence: None)
  Receive Date: 20090323
  Receipt Date: 20090306
  Transmission Date: 20090719
  Serious: Yes (Hospitalization)
  Sender: FDA-Public Use
  Company Number: 8043844

PATIENT
  Age: 70 Year
  Sex: Female
  Weight: 69.4 kg

DRUGS (6)
  1. CIMZIA [Suspect]
     Indication: CROHN'S DISEASE
     Dosage: 400 MG SC
     Route: 058
     Dates: start: 20080601
  2. PREDNISONE [Concomitant]
  3. PROTONIX [Concomitant]
  4. PENTASA [Concomitant]
  5. STROVIET [Concomitant]
  6. PRANDIN [Concomitant]

REACTIONS (3)
  - BLOOD GLUCOSE INCREASED [None]
  - BLOOD POTASSIUM DECREASED [None]
  - FREQUENT BOWEL MOVEMENTS [None]
